FAERS Safety Report 4678207-8 (Version None)
Quarter: 2005Q2

REPORT INFORMATION
  Report Type: 
  Country: None (occurrence: None)
  Receive Date: 20050601
  Receipt Date: 20050524
  Transmission Date: 20051028
  Serious: Yes (Death, Hospitalization, Other)
  Sender: FDA-Public Use
  Company Number: PHBS2005IL07377

PATIENT
  Age: 1 Year
  Sex: Female

DRUGS (13)
  1. METHYLPREDNISOLONE [Suspect]
  2. FLUDARABINE [Suspect]
     Indication: STEM CELL TRANSPLANT
     Route: 065
  3. BUSULFAN [Suspect]
     Indication: STEM CELL TRANSPLANT
     Route: 065
  4. ATG [Suspect]
     Indication: STEM CELL TRANSPLANT
     Dosage: 10 MG/KG/D
     Route: 065
  5. CYCLOSPORINE [Suspect]
     Indication: STEM CELL TRANSPLANT
     Dosage: 3 MG/KG/D
     Route: 065
  6. PENTAMIDINE [Concomitant]
     Dosage: 4 MG/KG/D
     Route: 042
  7. VINCRISTINE [Suspect]
     Route: 051
  8. DOXORUBICIN [Suspect]
     Route: 051
  9. ELSPAR [Suspect]
     Route: 051
  10. METHOTREXATE [Suspect]
     Route: 037
  11. CYTOSAR [Suspect]
     Route: 037
  12. MITOXANTRONE [Suspect]
  13. SULFAMETHOXAZOLE + TRIMETHOPRIM [Concomitant]

REACTIONS (21)
  - CELLULITIS [None]
  - CEREBRAL INFARCTION [None]
  - CONVULSION [None]
  - DRUG TOXICITY [None]
  - ENTEROCOCCAL INFECTION [None]
  - ESCHERICHIA SEPSIS [None]
  - FEBRILE NEUTROPENIA [None]
  - GENERAL PHYSICAL HEALTH DETERIORATION [None]
  - GRAFT VERSUS HOST DISEASE [None]
  - LEUKAEMIA RECURRENT [None]
  - MENINGITIS [None]
  - OXYGEN SATURATION DECREASED [None]
  - PERIANAL ABSCESS [None]
  - PNEUMOCYSTIS JIROVECI PNEUMONIA [None]
  - PYREXIA [None]
  - RENAL FAILURE [None]
  - SEPTIC SHOCK [None]
  - STEM CELL TRANSPLANT [None]
  - TACHYPNOEA [None]
  - VENOOCCLUSIVE LIVER DISEASE [None]
  - VITAL FUNCTIONS ABNORMAL [None]
